FAERS Safety Report 7798927-6 (Version None)
Quarter: 2011Q4

REPORT INFORMATION
  Report Type: 
  Country: None (occurrence: None)
  Receive Date: 20111006
  Receipt Date: 20111005
  Transmission Date: 20120403
  Serious: Yes (Other)
  Sender: FDA-Public Use
  Company Number: US-PFIZER INC-2011238051

PATIENT
  Sex: Male

DRUGS (1)
  1. CHANTIX [Suspect]
     Dosage: UNK
     Route: 048
     Dates: start: 20110901

REACTIONS (7)
  - HOMICIDAL IDEATION [None]
  - URINARY INCONTINENCE [None]
  - ABNORMAL DREAMS [None]
  - SLEEP DISORDER [None]
  - FEELING ABNORMAL [None]
  - CRYING [None]
  - AGGRESSION [None]
